FAERS Safety Report 6895773-2 (Version None)
Quarter: 2010Q3

REPORT INFORMATION
  Report Type: 
  Country: None (occurrence: None)
  Receive Date: 20100802
  Receipt Date: 20100721
  Transmission Date: 20110219
  Serious: Yes (Other)
  Sender: FDA-Public Use
  Company Number: US-PFIZER INC-2010093174

PATIENT
  Sex: Female
  Weight: 104 kg

DRUGS (8)
  1. ZOLOFT [Suspect]
  2. EFFEXOR [Suspect]
     Indication: DEPRESSION
     Dosage: 75 MG, DAILY
  3. AMLODIPINE [Concomitant]
     Dosage: UNK
  4. DIOVAN HCT [Concomitant]
     Dosage: UNK
  5. NEXIUM [Concomitant]
     Dosage: UNK
  6. ACETYLSALICYLIC ACID [Concomitant]
  7. CRESTOR [Concomitant]
     Dosage: 40 MG, UNK
  8. PLAVIX [Concomitant]
     Dosage: 75 MG, UNK

REACTIONS (6)
  - ABDOMINAL PAIN UPPER [None]
  - MESENTERITIS [None]
  - PITUITARY TUMOUR [None]
  - RENAL CYST [None]
  - RENAL DISORDER [None]
  - WEIGHT INCREASED [None]
